FAERS Safety Report 8262974 (Version 7)
Quarter: 2013Q3

REPORT INFORMATION
  Report Type: Spontaneous
  Country: US (occurrence: US)
  Receive Date: 20111125
  Receipt Date: 20130920
  Transmission Date: 20140515
  Serious: Yes (Other)
  Sender: FDA-Public Use
  Company Number: US-ROCHE-1015921

PATIENT
  Age: 17 Year
  Sex: Male
  Weight: 77.18 kg

DRUGS (8)
  1. ACCUTANE [Suspect]
     Indication: ACNE
     Route: 065
     Dates: start: 20010719, end: 20020117
  2. FOLIC ACID [Concomitant]
  3. AZATHIOPRINE [Concomitant]
  4. LIALDA [Concomitant]
  5. ASACOL [Concomitant]
  6. ADDERALL [Concomitant]
  7. PREDNISONE [Concomitant]
     Route: 065
  8. FERROUS SULFATE [Concomitant]

REACTIONS (5)
  - Colitis ulcerative [Unknown]
  - Inflammatory bowel disease [Unknown]
  - Depression [Unknown]
  - Injury [Unknown]
  - Large intestine polyp [Unknown]
